FAERS Safety Report 10503360 (Version 1)
Quarter: 2014Q4

REPORT INFORMATION
  Report Type: Spontaneous
  Country: GB (occurrence: GB)
  Receive Date: 20141008
  Receipt Date: 20141008
  Transmission Date: 20150528
  Serious: Yes (Disabling)
  Sender: FDA-Public Use
  Company Number: GB-ACCORD-026257

PATIENT
  Age: 71 Year
  Sex: Female
  Weight: 85 kg

DRUGS (23)
  1. LANSOPRAZOLE. [Concomitant]
     Active Substance: LANSOPRAZOLE
  2. PREGABALIN. [Concomitant]
     Active Substance: PREGABALIN
  3. ISOSORBIDE [Concomitant]
     Active Substance: ISOSORBIDE
  4. METOCLOPRAMIDE. [Concomitant]
     Active Substance: METOCLOPRAMIDE
  5. FELODIPINE. [Concomitant]
     Active Substance: FELODIPINE
  6. FUROSEMIDE. [Concomitant]
     Active Substance: FUROSEMIDE
  7. CLOPIDOGREL [Suspect]
     Active Substance: CLOPIDOGREL BISULFATE
     Indication: CORONARY ARTERIAL STENT INSERTION
     Route: 048
     Dates: start: 20140803
  8. PERINDOPRIL/PERINDOPRIL ERBUMINE [Concomitant]
  9. HYDRALAZINE [Concomitant]
     Active Substance: HYDRALAZINE HYDROCHLORIDE
  10. ADCAL [Concomitant]
  11. BISOPROLOL [Concomitant]
     Active Substance: BISOPROLOL
  12. EPLERENONE. [Concomitant]
     Active Substance: EPLERENONE
  13. FELBINAC/FELBINAC IMINOBIS(2-PROPANOL) [Concomitant]
  14. IRON [Concomitant]
     Active Substance: IRON
  15. PARACETAMOL [Concomitant]
     Active Substance: ACETAMINOPHEN
  16. GLICLAZIDE [Concomitant]
     Active Substance: GLICLAZIDE
  17. CANDESARTAN [Concomitant]
     Active Substance: CANDESARTAN
  18. AMITRIPTYLINE [Concomitant]
     Active Substance: AMITRIPTYLINE
  19. GLUCOPHAGE [Concomitant]
     Active Substance: METFORMIN HYDROCHLORIDE
  20. NICORANDIL [Concomitant]
     Active Substance: NICORANDIL
  21. FOLIC ACID. [Concomitant]
     Active Substance: FOLIC ACID
  22. ASPIRIN. [Concomitant]
     Active Substance: ASPIRIN
  23. TRAMADOL [Concomitant]
     Active Substance: TRAMADOL

REACTIONS (1)
  - Polyarthritis [Recovered/Resolved]

NARRATIVE: CASE EVENT DATE: 20140825
